FAERS Safety Report 8104172-7 (Version None)
Quarter: 2012Q1

REPORT INFORMATION
  Report Type: 
  Country: None (occurrence: None)
  Receive Date: 20120130
  Receipt Date: 20120120
  Transmission Date: 20120608
  Serious: Yes (Death, Hospitalization, Disabling, Other)
  Sender: FDA-Public Use
  Company Number: US-ASTELLAS-2012US000595

PATIENT
  Sex: Female

DRUGS (6)
  1. APREPITANT [Concomitant]
     Indication: NAUSEA
     Dosage: UNK
     Route: 048
     Dates: start: 20110708
  2. TARCEVA [Suspect]
     Indication: LUNG NEOPLASM MALIGNANT
     Dosage: 150 MG, UID/QD
     Route: 048
     Dates: start: 20110621, end: 20110708
  3. OXYCODONE HCL [Concomitant]
     Indication: PAIN
     Dosage: 5 MG, OTHER, Q4HRS
     Route: 048
     Dates: start: 20110708
  4. CITALOPRAM HYDROBROMIDE [Concomitant]
     Indication: DEPRESSION
     Dosage: 20 MG, UID/QD
     Route: 048
     Dates: start: 20110708
  5. LANSOPRAZOLE [Concomitant]
     Indication: GASTROOESOPHAGEAL REFLUX DISEASE
     Dosage: 30 MG, UID/QD
     Dates: start: 20110708
  6. LEVOTHYROXINE SODIUM [Concomitant]
     Indication: HYPOTHYROIDISM
     Dosage: 125 MG, UID/QD
     Route: 048

REACTIONS (7)
  - URINARY TRACT INFECTION [None]
  - ASTHENIA [None]
  - PULMONARY EMBOLISM [None]
  - ANAEMIA [None]
  - NEOPLASM MALIGNANT [None]
  - DEEP VEIN THROMBOSIS [None]
  - FATIGUE [None]
